FAERS Safety Report 15972456 (Version 3)
Quarter: 2019Q1

REPORT INFORMATION
  Report Type: Spontaneous
  Country: US (occurrence: US)
  Receive Date: 20190216
  Receipt Date: 20190321
  Transmission Date: 20190418
  Serious: Yes (Hospitalization)
  Sender: FDA-Public Use
  Company Number: US-JNJFOC-20190201641

PATIENT
  Age: 62 Year
  Sex: Male

DRUGS (14)
  1. FENTANYL TRANSDERMAL SYSTEM [Concomitant]
     Active Substance: FENTANYL
     Route: 065
  2. FLUTICASONE PROPIONATE. [Concomitant]
     Active Substance: FLUTICASONE PROPIONATE
     Route: 045
  3. LISINOPRIL. [Concomitant]
     Active Substance: LISINOPRIL
     Route: 065
  4. ZYTIGA [Suspect]
     Active Substance: ABIRATERONE ACETATE
     Indication: PROSTATE CANCER
     Dosage: 2- 500MG TABLET
     Route: 048
     Dates: start: 20170101
  5. DICLOFENAC [Concomitant]
     Active Substance: DICLOFENAC
     Route: 065
  6. CALCIUM VITAMIN D3 [Concomitant]
     Route: 065
  7. VITAMIN D2 [Concomitant]
     Active Substance: ERGOCALCIFEROL
     Route: 065
  8. DOCUSATE SODIUM. [Concomitant]
     Active Substance: DOCUSATE SODIUM
     Route: 065
  9. HYDROCODONE/ACETAMINOPHEN [Concomitant]
     Active Substance: ACETAMINOPHEN\HYDROCODONE
     Route: 065
  10. ZOLPIDEM TARTATE [Concomitant]
     Active Substance: ZOLPIDEM TARTRATE
     Route: 065
  11. DIPHENHYDRAMINE. [Concomitant]
     Active Substance: DIPHENHYDRAMINE
     Route: 048
  12. PREDNISONE. [Concomitant]
     Active Substance: PREDNISONE
     Route: 048
  13. HTZ [Concomitant]
     Route: 065
  14. AMLODIPINE BESYLATE. [Concomitant]
     Active Substance: AMLODIPINE BESYLATE
     Route: 065

REACTIONS (3)
  - Knee operation [Unknown]
  - Blood pressure increased [Unknown]
  - Hot flush [Recovering/Resolving]

NARRATIVE: CASE EVENT DATE: 20170101
